FAERS Safety Report 5169424-1 (Version None)
Quarter: 2007Q1

REPORT INFORMATION
  Report Type: 
  Country: None (occurrence: None)
  Receive Date: 20061201
  Receipt Date: 20061116
  Transmission Date: 20070707
  Serious: Yes (Hospitalization, Other)
  Sender: FDA-Public Use
  Company Number: 2006143216

PATIENT
  Age: 75 Year
  Sex: Male
  Weight: 113.3993 kg

DRUGS (19)
  1. XALATAN [Suspect]
     Indication: GLAUCOMA
  2. CHLORPHENIRAMINE MALEATE (CHLORPHENIRAMINE MALEATE) [Concomitant]
  3. FUROSEMIDE [Concomitant]
  4. ALLOPURINOL [Concomitant]
  5. DIGOXIN [Concomitant]
  6. POTASSIUM CHLORIDE [Concomitant]
  7. K-DUR 10 [Concomitant]
  8. WARFARIN SODIUM [Concomitant]
  9. AMIODARONE HCL [Concomitant]
  10. MULTIVITAMIN [Concomitant]
  11. TOPROL-XL [Concomitant]
  12. QUINAPRIL [Concomitant]
  13. ASPIRIN [Concomitant]
  14. NORVASC [Concomitant]
  15. MAGNESIUM OXIDE (MAGNESIUM OXIDE) [Concomitant]
  16. MECLIZINE [Concomitant]
  17. DETROL LA [Concomitant]
  18. EXELON (PRIVASTIGMINE  TARTRATE) [Concomitant]
  19. GABAPENTIN [Concomitant]

REACTIONS (1)
  - EYE OPERATION [None]
